FAERS Safety Report 17021242 (Version 1)
Quarter: 2019Q4

REPORT INFORMATION
  Report Type: Spontaneous
  Country: US (occurrence: US)
  Receive Date: 20191007
  Receipt Date: 20191007
  Transmission Date: 20200122
  Serious: No
  Sender: FDA-Public Use
  Company Number: None

PATIENT
  Age: 72 Year
  Sex: Female

DRUGS (1)
  1. OPSUMIT [Suspect]
     Active Substance: MACITENTAN
     Indication: PULMONARY ARTERIAL HYPERTENSION
     Route: 048
     Dates: start: 20190910, end: 20190918

REACTIONS (6)
  - Peripheral swelling [None]
  - Ear discomfort [None]
  - Unevaluable event [None]
  - Cough [None]
  - Erythema [None]
  - Oxygen saturation decreased [None]

NARRATIVE: CASE EVENT DATE: 20190918
